FAERS Safety Report 23668275 (Version 1)
Quarter: 2024Q1

REPORT INFORMATION
  Report Type: Spontaneous
  Country: US (occurrence: None)
  Receive Date: 20240322
  Receipt Date: 20240322
  Transmission Date: 20240410
  Serious: Yes (Hospitalization)
  Sender: FDA-Public Use
  Company Number: None

PATIENT
  Age: 77 Year
  Sex: Male
  Weight: 81 kg

DRUGS (15)
  1. JARDIANCE [Suspect]
     Active Substance: EMPAGLIFLOZIN
     Indication: Cardiac failure
     Dosage: FREQUENCY : DAILY;?
     Route: 048
     Dates: start: 20240214, end: 20240229
  2. JARDIANCE [Suspect]
     Active Substance: EMPAGLIFLOZIN
     Indication: Chronic kidney disease
  3. albuterol/ipratropium q6h PRN [Concomitant]
  4. apixaban 5mg BID [Concomitant]
  5. atorvastatin 80mg HS [Concomitant]
  6. CLOPIDOGREL [Concomitant]
     Active Substance: CLOPIDOGREL BISULFATE
  7. DULOXETINE [Concomitant]
     Active Substance: DULOXETINE
  8. famotidine 20mg daily [Concomitant]
  9. furosemide 40mg daily [Concomitant]
  10. gabapentin 100mg BID [Concomitant]
  11. melatonin 3mg HS PRN [Concomitant]
  12. metoprolol ER 100mg daily [Concomitant]
  13. oxybutynin 5mg TID [Concomitant]
  14. Klor-Con M 20mEq daily [Concomitant]
  15. prednisone 20mg daily [Concomitant]

REACTIONS (12)
  - Diabetic ketoacidosis [None]
  - Mental status changes [None]
  - Confusional state [None]
  - Asthenia [None]
  - Leukocytosis [None]
  - Acute kidney injury [None]
  - Liver function test increased [None]
  - Metabolic acidosis [None]
  - Dehydration [None]
  - Seizure [None]
  - Therapy cessation [None]
  - Hypervolaemia [None]

NARRATIVE: CASE EVENT DATE: 20240229
